FAERS Safety Report 8430464 (Version 2)
Quarter: 2012Q4

REPORT INFORMATION
  Report Type: 
  Country: US (occurrence: US)
  Receive Date: 20120228
  Receipt Date: 20120930
  Transmission Date: 20130627
  Serious: Yes (Other)
  Sender: FDA-Public Use
  Company Number: US-ELI_LILLY_AND_COMPANY-US200910007339

PATIENT
  Age: 44 Year
  Sex: Male

DRUGS (10)
  1. ZYPREXA [Suspect]
     Indication: SCHIZOPHRENIA
     Dosage: 15 mg, each evening
     Route: 048
     Dates: start: 20020503
  2. ZYPREXA [Suspect]
     Dosage: 30 mg, each evening
     Route: 048
  3. ZYPREXA [Suspect]
     Dosage: 10 mg, each evening
  4. ZYPREXA [Suspect]
     Dosage: 5 mg, UNK
  5. VALPROIC ACID [Concomitant]
  6. DEPAKOTE [Concomitant]
  7. ABILIFY [Concomitant]
  8. DILANTIN [Concomitant]
     Dosage: 300 mg, each evening
     Route: 048
  9. SYNTHROID [Concomitant]
  10. SEROQUEL [Concomitant]

REACTIONS (21)
  - Cardiac failure congestive [Unknown]
  - Hepatic cirrhosis [Unknown]
  - Weight increased [Unknown]
  - Type 2 diabetes mellitus [Unknown]
  - Gastrointestinal haemorrhage [Unknown]
  - Pancytopenia [Unknown]
  - Left ventricular hypertrophy [Unknown]
  - Mitral valve incompetence [Unknown]
  - Tricuspid valve incompetence [Unknown]
  - Anaemia [Unknown]
  - Gastrooesophageal reflux disease [Unknown]
  - Weight decreased [Unknown]
  - Sleep apnoea syndrome [Unknown]
  - Gastritis [Unknown]
  - Sinusitis [Unknown]
  - Urinary tract infection [Unknown]
  - High density lipoprotein decreased [Unknown]
  - Oedema peripheral [Unknown]
  - Hyperlipidaemia [Unknown]
  - Hypertension [Unknown]
  - Prescribed overdose [Recovered/Resolved]
